FAERS Safety Report 23468555 (Version 1)
Quarter: 2024Q1

REPORT INFORMATION
  Report Type: Spontaneous
  Country: US (occurrence: None)
  Receive Date: 20240201
  Receipt Date: 20240201
  Transmission Date: 20240410
  Serious: Yes (Other)
  Sender: FDA-Public Use
  Company Number: None

PATIENT
  Age: 37 Year
  Sex: Female
  Weight: 65.25 kg

DRUGS (7)
  1. ADDYI [Suspect]
     Active Substance: FLIBANSERIN
     Indication: Libido decreased
     Dosage: 1 TABLET AT BEDTIME ORAL?
     Route: 048
  2. 250mg naproxen [Concomitant]
  3. 200mg magnesium [Concomitant]
  4. 1000mg EPA omega fish oil [Concomitant]
  5. 1000iu vitamin D [Concomitant]
  6. 200mg L-theonine [Concomitant]
  7. FLUCONAZOLE [Suspect]
     Active Substance: FLUCONAZOLE

REACTIONS (10)
  - Contraindicated product administered [None]
  - Hyperhidrosis [None]
  - Feeling hot [None]
  - Dyspnoea [None]
  - Nervousness [None]
  - Syncope [None]
  - Heart rate irregular [None]
  - Hypervigilance [None]
  - Insomnia [None]
  - Drug interaction [None]

NARRATIVE: CASE EVENT DATE: 20240125
